FAERS Safety Report 21392064 (Version 1)
Quarter: 2022Q3

REPORT INFORMATION
  Report Type: Report from Study
  Country: US (occurrence: US)
  Receive Date: 20220929
  Receipt Date: 20220929
  Transmission Date: 20221026
  Serious: Yes (Hospitalization, Other)
  Sender: FDA-Public Use
  Company Number: US-TAKEDA-2022TUS068953

PATIENT
  Sex: Female
  Weight: 59 kg

DRUGS (19)
  1. HUMAN IMMUNOGLOBULIN G\HYALURONIDASE RECOMBINANT HUMAN [Suspect]
     Active Substance: HUMAN IMMUNOGLOBULIN G\HYALURONIDASE RECOMBINANT HUMAN
     Indication: Immunodeficiency common variable
     Dosage: 40 GRAM, Q4WEEKS
     Route: 058
     Dates: start: 20220902
  2. AZATHIOPRINE [Concomitant]
     Active Substance: AZATHIOPRINE
  3. BACLOFEN [Concomitant]
     Active Substance: BACLOFEN
  4. BUSPIRONE HCL [Concomitant]
     Active Substance: BUSPIRONE HYDROCHLORIDE
  5. LAMICTAL [Concomitant]
     Active Substance: LAMOTRIGINE
  6. FLUTICASONE PROPIONATE [Concomitant]
     Active Substance: FLUTICASONE PROPIONATE
  7. HYDROXYCHLOROQUINE SULFATE [Concomitant]
     Active Substance: HYDROXYCHLOROQUINE SULFATE
  8. BREO ELLIPTA [Concomitant]
     Active Substance: FLUTICASONE FUROATE\VILANTEROL TRIFENATATE
  9. LEVAQUIN [Concomitant]
     Active Substance: LEVOFLOXACIN
  10. SPIRIVA RESPIMAT [Concomitant]
     Active Substance: TIOTROPIUM BROMIDE
  11. KYLEENA [Concomitant]
     Active Substance: LEVONORGESTREL
  12. CLONAZEPAM [Concomitant]
     Active Substance: CLONAZEPAM
  13. PREDNISONE [Concomitant]
     Active Substance: PREDNISONE
  14. NEXIUM [Concomitant]
     Active Substance: ESOMEPRAZOLE MAGNESIUM
  15. ZOVIRAX [Concomitant]
     Active Substance: ACYCLOVIR
  16. VITAMINS [Concomitant]
     Active Substance: VITAMINS
  17. MIDODRINE HYDROCHLORIDE [Concomitant]
     Active Substance: MIDODRINE HYDROCHLORIDE
  18. PROAIR RESPICLICK [Concomitant]
     Active Substance: ALBUTEROL SULFATE
  19. PROAIR HFA [Concomitant]
     Active Substance: ALBUTEROL SULFATE

REACTIONS (3)
  - Pneumonia [Recovering/Resolving]
  - Swelling [Unknown]
  - Erythema [Unknown]
